FAERS Safety Report 9015402 (Version 2)
Quarter: 2013Q1

REPORT INFORMATION
  Report Type: Spontaneous
  Country: JP (occurrence: None)
  Receive Date: 20130103
  Receipt Date: 20130221
  Transmission Date: 20140127
  Serious: No
  Sender: FDA-Public Use
  Company Number: TCI2012A07017

PATIENT
  Age: 87 Year
  Sex: Female

DRUGS (6)
  1. ACTOS (PIOGLITAZONE HYDROCHLORIDE) [Suspect]
     Indication: TYPE 2 DIABETES MELLITUS
     Route: 048
     Dates: start: 20110623, end: 20130213
  2. NOVORAPID 30 MIX [Suspect]
     Dosage: 20 U/DAY (MORNING 14 U, EVENING 6 U) (20 UT,2 IN 1 D)
     Route: 058
  3. SEIBULE [Suspect]
     Dosage: 450 MG (150 MG,3 IN 1 D)
     Route: 048
  4. LIPITOR (ATORVASTATIN CALCIUM) [Suspect]
     Route: 048
     Dates: end: 20120213
  5. THYRADIN S [Suspect]
     Route: 048
  6. ARICEPT D [Suspect]
     Route: 048
     Dates: end: 20120213

REACTIONS (2)
  - Dementia [None]
  - Pancreatic carcinoma recurrent [None]
